FAERS Safety Report 7964306-1 (Version None)
Quarter: 2011Q4

REPORT INFORMATION
  Report Type: 
  Country: None (occurrence: None)
  Receive Date: 20111206
  Receipt Date: 20111123
  Transmission Date: 20120403
  Serious: Yes (Hospitalization, Other)
  Sender: FDA-Public Use
  Company Number: 2011MA016818

PATIENT
  Age: 73 Year
  Sex: Female

DRUGS (1)
  1. TEMAZEPAM [Suspect]
     Dosage: 40 MG;QD;UNK

REACTIONS (13)
  - MUTISM [None]
  - IMMOBILE [None]
  - AGITATION [None]
  - WITHDRAWAL SYNDROME [None]
  - INFECTIVE EXACERBATION OF CHRONIC OBSTRUCTIVE AIRWAYS DISEASE [None]
  - GAIT DISTURBANCE [None]
  - GENERAL PHYSICAL HEALTH DETERIORATION [None]
  - POSTURE ABNORMAL [None]
  - ECHOLALIA [None]
  - SPEECH DISORDER [None]
  - CATATONIA [None]
  - REFUSAL OF TREATMENT BY PATIENT [None]
  - MALAISE [None]
